FAERS Safety Report 5154528-X (Version None)
Quarter: 2006Q4

REPORT INFORMATION
  Report Type: 
  Country: None (occurrence: None)
  Receive Date: 20061114
  Receipt Date: 19980119
  Transmission Date: 20070319
  Serious: Yes (Death, Hospitalization, Other)
  Sender: FDA-Public Use
  Company Number: 2006118326

PATIENT
  Age: 69 Year
  Sex: Male

DRUGS (2)
  1. IRINOTECAN HCL [Suspect]
     Indication: COLORECTAL CANCER
     Dosage: 750 MG (EVERY 3 WEEKS), INTRAVENOUS
     Route: 042
     Dates: start: 19980106, end: 19980106
  2. TROPISETRON (TROPISETRON) [Concomitant]

REACTIONS (13)
  - CARDIAC ARREST [None]
  - CHEILITIS [None]
  - DIARRHOEA [None]
  - DYSPNOEA [None]
  - FALL [None]
  - GASTROENTERITIS BACTERIAL [None]
  - GASTROENTERITIS STAPHYLOCOCCAL [None]
  - HAEMATEMESIS [None]
  - NAUSEA [None]
  - PULSE ABSENT [None]
  - PYREXIA [None]
  - STOMATITIS [None]
  - VOMITING [None]
